FAERS Safety Report 23027097 (Version 1)
Quarter: 2023Q4

REPORT INFORMATION
  Report Type: Spontaneous
  Country: US (occurrence: None)
  Receive Date: 20231003
  Receipt Date: 20231003
  Transmission Date: 20240110
  Serious: Yes (Other)
  Sender: FDA-Public Use
  Company Number: None

PATIENT
  Age: 11 Year
  Sex: Male
  Weight: 29.25 kg

DRUGS (5)
  1. AZSTARYS [Suspect]
     Active Substance: DEXMETHYLPHENIDATE HYDROCHLORIDE\SERDEXMETHYLPHENIDATE CHLORIDE
     Indication: Attention deficit hyperactivity disorder
     Route: 048
     Dates: start: 20230928, end: 20230928
  2. Natrol Relax day calm and night calm [Concomitant]
  3. GABA [Concomitant]
     Active Substance: HOMEOPATHICS
  4. MARY RUTHS multivitamin [Concomitant]
  5. MARY RUTHS kids magnesium calm gummies [Concomitant]

REACTIONS (2)
  - Dyskinesia [None]
  - Tic [None]

NARRATIVE: CASE EVENT DATE: 20230928
